FAERS Safety Report 4409787-5 (Version None)
Quarter: 2004Q3

REPORT INFORMATION
  Report Type: 
  Country: None (occurrence: None)
  Receive Date: 20040726
  Receipt Date: 20040716
  Transmission Date: 20050211
  Serious: Yes (Other)
  Sender: FDA-Public Use
  Company Number: HQWYE181816JUL04

PATIENT
  Age: 84 Year
  Sex: Female

DRUGS (2)
  1. CORDARONE [Suspect]
     Dosage: 200 MG 5X PER 1 WK ORAL
     Route: 048
  2. ASPIRIN [Concomitant]

REACTIONS (1)
  - PERIPHERAL PARALYSIS [None]
